FAERS Safety Report 26005976 (Version 1)
Quarter: 2025Q4

REPORT INFORMATION
  Report Type: Spontaneous
  Country: US (occurrence: None)
  Receive Date: 20251105
  Receipt Date: 20251105
  Transmission Date: 20260117
  Serious: No
  Sender: FDA-CTU
  Company Number: None

PATIENT
  Age: 87 Year
  Sex: Female
  Weight: 65.77 kg

DRUGS (16)
  1. NYSTATIN [Suspect]
     Active Substance: NYSTATIN
     Dosage: FREQUENCY : 4 TIMES A DAY;?
     Route: 048
     Dates: start: 20250930, end: 20251002
  2. COENZYME Q10 [Concomitant]
     Active Substance: DIETARY SUPPLEMENT\UBIDECARENONE
  3. ASPIRIN [Concomitant]
     Active Substance: ASPIRIN
  4. VITAMIN D3 [Concomitant]
     Active Substance: CHOLECALCIFEROL
  5. CRANBERRY [Concomitant]
     Active Substance: CRANBERRY
  6. Fiber Capsules [Concomitant]
  7. ALBUTEROL SULFATE [Concomitant]
     Active Substance: ALBUTEROL SULFATE
  8. DILTIAZEM [Concomitant]
     Active Substance: DILTIAZEM
  9. ENALAPRIL [Concomitant]
     Active Substance: ENALAPRIL
  10. ESOMEPRAZOLE [Concomitant]
     Active Substance: ESOMEPRAZOLE
  11. FERROUS SULFATE [Concomitant]
     Active Substance: FERROUS SULFATE
  12. MELOXICAM [Concomitant]
     Active Substance: MELOXICAM
  13. PRAVASTATIN [Concomitant]
     Active Substance: PRAVASTATIN
  14. SERTRALINE [Concomitant]
     Active Substance: SERTRALINE HYDROCHLORIDE
  15. INCRUSE ELLIPTA [Concomitant]
     Active Substance: UMECLIDINIUM BROMIDE
  16. Trilogy Evo [Concomitant]

REACTIONS (7)
  - Pharyngitis streptococcal [None]
  - Candida infection [None]
  - Diarrhoea [None]
  - Pruritus [None]
  - Scratch [None]
  - Erythema [None]
  - Feeling abnormal [None]

NARRATIVE: CASE EVENT DATE: 20250930
